FAERS Safety Report 5015927-X (Version None)
Quarter: 2006Q2

REPORT INFORMATION
  Report Type: 
  Country: None (occurrence: None)
  Receive Date: 20060525
  Receipt Date: 20060511
  Transmission Date: 20061013
  Serious: Yes (Other)
  Sender: FDA-Public Use
  Company Number: 280001L06JPN

PATIENT
  Age: 43 Year
  Sex: Male

DRUGS (1)
  1. FERTINORM P(MENOTROPHIN) [Suspect]
     Indication: INFERTILITY MALE
     Dosage: 75 IU, 2 IN 1 WEEKS

REACTIONS (1)
  - TESTICULAR NEOPLASM [None]
